FAERS Safety Report 19775307 (Version 1)
Quarter: 2021Q3

REPORT INFORMATION
  Report Type: Spontaneous
  Country: PT (occurrence: PT)
  Receive Date: 20210902
  Receipt Date: 20210902
  Transmission Date: 20211014
  Serious: Yes (Other)
  Sender: FDA-Public Use
  Company Number: PT-CELLTRION INC.-2021PT011635

PATIENT

DRUGS (3)
  1. DOCETAXEL. [Concomitant]
     Active Substance: DOCETAXEL
     Dosage: UNK
  2. TRASTUZUMAB. [Suspect]
     Active Substance: TRASTUZUMAB
     Indication: INVASIVE BREAST CARCINOMA
     Route: 065
  3. PERTUZUMAB. [Concomitant]
     Active Substance: PERTUZUMAB
     Dosage: UNK

REACTIONS (4)
  - Metastases to central nervous system [Recovered/Resolved]
  - Metastases to gastrointestinal tract [Recovered/Resolved]
  - Off label use [Unknown]
  - Breast cancer metastatic [Recovered/Resolved]
